FAERS Safety Report 6955403 (Version 8)
Quarter: 2012Q4

REPORT INFORMATION
  Report Type: 
  Country: US (occurrence: US)
  Receive Date: 20090330
  Receipt Date: 20120831
  Transmission Date: 20130627
  Serious: Yes (Disabling, Other)
  Sender: FDA-Public Use
  Company Number: US-ROCHE-622162

PATIENT
  Age: 36 Year
  Sex: Female
  Weight: 83.9 kg

DRUGS (7)
  1. ACCUTANE [Suspect]
     Indication: ACNE CYSTIC
     Route: 065
     Dates: start: 20040702, end: 20041004
  2. ACCUTANE [Suspect]
     Route: 065
     Dates: start: 20041005, end: 20041209
  3. ACCUTANE [Suspect]
     Route: 065
     Dates: start: 20041210, end: 200501
  4. AMNESTEEM [Suspect]
     Indication: ACNE
     Route: 065
     Dates: start: 20040324, end: 20040630
  5. ZESTRIL [Concomitant]
     Indication: HYPERTENSION
     Route: 065
  6. NORVASC [Concomitant]
     Indication: HYPERTENSION
     Route: 065
  7. HCTZ [Concomitant]
     Indication: HYPERTENSION
     Route: 065

REACTIONS (13)
  - Anxiety [Unknown]
  - Intestinal obstruction [Unknown]
  - Inflammatory bowel disease [Unknown]
  - Crohn^s disease [Unknown]
  - Chest pain [Recovered/Resolved]
  - Emotional distress [Unknown]
  - Injury [Unknown]
  - Sinusitis [Unknown]
  - Hypoaesthesia [Unknown]
  - Hypoaesthesia [Recovered/Resolved]
  - Cough [Unknown]
  - Blood cholesterol increased [Unknown]
  - Blood triglycerides increased [Unknown]
